FAERS Safety Report 7469463-1 (Version None)
Quarter: 2011Q2

REPORT INFORMATION
  Report Type: 
  Country: None (occurrence: None)
  Receive Date: 20110510
  Receipt Date: 20110429
  Transmission Date: 20111010
  Serious: Yes (Hospitalization)
  Sender: FDA-Public Use
  Company Number: US-AMGEN-USASP2011022537

PATIENT
  Age: 53 Year
  Sex: Male

DRUGS (2)
  1. ENBREL [Suspect]
     Indication: PSORIATIC ARTHROPATHY
  2. ENBREL [Suspect]
     Indication: PSORIASIS
     Dosage: 50 MG, QWK
     Dates: start: 20020101

REACTIONS (11)
  - GAIT DISTURBANCE [None]
  - OSTEOARTHRITIS [None]
  - INJECTION SITE HAEMATOMA [None]
  - THROMBOSIS [None]
  - CLOSTRIDIUM DIFFICILE COLITIS [None]
  - FEELING ABNORMAL [None]
  - CONTUSION [None]
  - CELLULITIS [None]
  - STAPHYLOCOCCAL INFECTION [None]
  - PAIN [None]
  - INFUSION SITE HAEMATOMA [None]
